FAERS Safety Report 9594236 (Version 1)
Quarter: 2013Q4

REPORT INFORMATION
  Report Type: Spontaneous
  Country: US (occurrence: US)
  Receive Date: 20131004
  Receipt Date: 20131004
  Transmission Date: 20140711
  Serious: No
  Sender: FDA-Public Use
  Company Number: US-PURDUE-USA-2012-0090262

PATIENT
  Sex: Female

DRUGS (1)
  1. BUTRANS [Suspect]
     Indication: PAIN
     Dosage: 20 MCG/HR, UNK
     Dates: start: 201203, end: 201207

REACTIONS (4)
  - Drug administered at inappropriate site [Unknown]
  - Application site pruritus [Recovered/Resolved]
  - Application site rash [Unknown]
  - Application site pain [Recovered/Resolved]
